FAERS Safety Report 10706693 (Version 1)
Quarter: 2015Q1

REPORT INFORMATION
  Report Type: Spontaneous
  Country: US (occurrence: None)
  Receive Date: 20150109
  Receipt Date: 20150109
  Transmission Date: 20150721
  Serious: Yes (Life-Threatening, Hospitalization, Disabling)
  Sender: FDA-Public Use
  Company Number: None

PATIENT
  Age: 55 Year
  Sex: Female
  Weight: 76.66 kg

DRUGS (1)
  1. LYRICA [Suspect]
     Active Substance: PREGABALIN
     Indication: FIBROMYALGIA
     Dates: start: 20120201, end: 20130116

REACTIONS (9)
  - Asphyxia [None]
  - Suicide attempt [None]
  - Euphoric mood [None]
  - Abnormal behaviour [None]
  - Carbon monoxide poisoning [None]
  - Job dissatisfaction [None]
  - Hypersexuality [None]
  - Disturbance in attention [None]
  - Intentional overdose [None]

NARRATIVE: CASE EVENT DATE: 20120920
